FAERS Safety Report 10276124 (Version 2)
Quarter: 2015Q1

REPORT INFORMATION
  Report Type: Spontaneous
  Country: US (occurrence: US)
  Receive Date: 20140703
  Receipt Date: 20150106
  Transmission Date: 20150720
  Serious: No
  Sender: FDA-Public Use
  Company Number: US-BAYER-2014-099346

PATIENT
  Age: 36 Year
  Sex: Female
  Weight: 90.52 kg

DRUGS (2)
  1. MIRENA [Suspect]
     Active Substance: LEVONORGESTREL
     Indication: CONTRACEPTION
     Dosage: 20 MCG/24HR, CONT
     Route: 015
     Dates: start: 20120828
  2. MIRENA [Suspect]
     Active Substance: LEVONORGESTREL
     Indication: DYSMENORRHOEA

REACTIONS (1)
  - Menorrhagia [Unknown]

NARRATIVE: CASE EVENT DATE: 20120912
